FAERS Safety Report 8011422-4 (Version None)
Quarter: 2011Q4

REPORT INFORMATION
  Report Type: 
  Country: None (occurrence: None)
  Receive Date: 20111222
  Receipt Date: 20111213
  Transmission Date: 20120403
  Serious: Yes (Other)
  Sender: FDA-Public Use
  Company Number: CIP-2011-01103

PATIENT
  Sex: Female

DRUGS (2)
  1. CARBOPLATIN [Suspect]
     Indication: NEOPLASM MALIGNANT
     Dosage: AREA UNDER THE CURVE 6 (DAY 1, TOTAL OF 6 CYCLES), INTRAPERITONEAL
     Route: 033
  2. PACLITAXEL [Suspect]
     Indication: NEOPLASM MALIGNANT
     Dosage: 135 MG/M, INTRAVENOUS, 60 MG/M (DAY 8), INTRAPERITONEAL
     Route: 033

REACTIONS (1)
  - ILEUS [None]
